FAERS Safety Report 16540704 (Version 1)
Quarter: 2019Q3

REPORT INFORMATION
  Report Type: Spontaneous
  Country: IT (occurrence: IT)
  Receive Date: 20190708
  Receipt Date: 20190708
  Transmission Date: 20191004
  Serious: Yes (Other)
  Sender: FDA-Public Use
  Company Number: IT-EMD SERONO-E2B_90068436

PATIENT
  Age: 36 Year
  Sex: Female
  Weight: 98 kg

DRUGS (2)
  1. CLADRIBINE. [Suspect]
     Active Substance: CLADRIBINE
     Dosage: SECOND WEEK THERAPY
     Route: 048
     Dates: start: 20190324, end: 20190328
  2. CLADRIBINE. [Suspect]
     Active Substance: CLADRIBINE
     Indication: MULTIPLE SCLEROSIS
     Dosage: FIRST WEEK THERAPY
     Route: 048
     Dates: start: 20190224

REACTIONS (1)
  - Leukopenia [Unknown]

NARRATIVE: CASE EVENT DATE: 20190509
